FAERS Safety Report 9486384 (Version 1)
Quarter: 2013Q3

REPORT INFORMATION
  Report Type: Spontaneous
  Country: US (occurrence: US)
  Receive Date: 20130829
  Receipt Date: 20130829
  Transmission Date: 20140515
  Serious: Yes (Hospitalization)
  Sender: FDA-Public Use
  Company Number: US-BAYER-2013-104354

PATIENT
  Age: 63 Year
  Sex: Female

DRUGS (2)
  1. STIVARGA [Suspect]
     Indication: RECTAL CANCER
     Dosage: 160 MG, QD X 21 D THEN 7 D OFF
     Route: 048
     Dates: start: 20130531, end: 201308
  2. STIVARGA [Suspect]
     Indication: COLON CANCER

REACTIONS (2)
  - Weight decreased [None]
  - Malnutrition [None]
